FAERS Safety Report 9969651 (Version 3)
Quarter: 2014Q3

REPORT INFORMATION
  Report Type: Spontaneous
  Country: US (occurrence: None)
  Receive Date: 20140130
  Receipt Date: 20140730
  Transmission Date: 20150326
  Serious: No
  Sender: FDA-Public Use
  Company Number: PHEH2013US021277

PATIENT
  Sex: Female

DRUGS (1)
  1. ARCAPTA NEOHALER [Suspect]
     Active Substance: INDACATEROL MALEATE
     Indication: CHRONIC OBSTRUCTIVE PULMONARY DISEASE
     Dosage: 75 UG, (75 UG/25 UG), INHALATION
     Route: 055

REACTIONS (5)
  - Lip dry [None]
  - Lip swelling [None]
  - Drug ineffective [None]
  - Dyspnoea [None]
  - Wrong technique in drug usage process [None]
